APPROVED DRUG PRODUCT: ADDERALL 10
Active Ingredient: AMPHETAMINE ASPARTATE; AMPHETAMINE SULFATE; DEXTROAMPHETAMINE SACCHARATE; DEXTROAMPHETAMINE SULFATE
Strength: 2.5MG;2.5MG;2.5MG;2.5MG **Federal Register determination that product was not discontinued or withdrawn for safety or effectiveness reasons**
Dosage Form/Route: TABLET;ORAL
Application: N011522 | Product #007
Applicant: TEVA WOMENS HEALTH INC
Approved: Feb 13, 1996 | RLD: Yes | RS: No | Type: DISCN